FAERS Safety Report 5194329-X (Version None)
Quarter: 2006Q4

REPORT INFORMATION
  Report Type: 
  Country: None (occurrence: None)
  Receive Date: 20061228
  Receipt Date: 20061011
  Transmission Date: 20070319
  Serious: No
  Sender: FDA-Public Use
  Company Number: US-ELI_LILLY_AND_COMPANY-US200610002172

PATIENT
  Sex: Female

DRUGS (1)
  1. HUMALOG MIX 75/25 [Suspect]
     Dates: start: 20020101

REACTIONS (5)
  - BACK PAIN [None]
  - COMPRESSION FRACTURE [None]
  - FISTULA [None]
  - NO ADVERSE DRUG EFFECT [None]
  - SPEECH DISORDER [None]
